FAERS Safety Report 7269175-3 (Version None)
Quarter: 2011Q1

REPORT INFORMATION
  Report Type: 
  Country: None (occurrence: None)
  Receive Date: 20110119
  Receipt Date: 20101228
  Transmission Date: 20110831
  Serious: Yes (Hospitalization, Other)
  Sender: FDA-Public Use
  Company Number: THYM-1000916

PATIENT
  Age: 35 Year
  Sex: Male
  Weight: 79 kg

DRUGS (8)
  1. METHYLPREDNISOLONE [Concomitant]
  2. SULTAMICILLIN TOSILATE (SULTAMICILLIN TOSILATE) [Concomitant]
  3. TACROLIMUS [Concomitant]
  4. SULPYRINE (METAMIZOLE SODIUM) [Concomitant]
  5. CHLORPHENIRAMINE MALEATE [Concomitant]
  6. THYMOGLOBULIN [Suspect]
     Indication: ACUTE GRAFT VERSUS HOST DISEASE
     Dosage: 125 MG, QD, INTRAVENOUS
     Route: 042
     Dates: start: 20090211, end: 20090211
  7. AMPHOTERICIN B [Concomitant]
  8. MICAFUNGIN SODIUM (MICAFUNGIN SODIUM) [Concomitant]

REACTIONS (1)
  - ANAPHYLACTIC SHOCK [None]
